FAERS Safety Report 11171161 (Version 1)
Quarter: 2015Q2

REPORT INFORMATION
  Report Type: Spontaneous
  Country: US (occurrence: US)
  Receive Date: 20150608
  Receipt Date: 20150608
  Transmission Date: 20150821
  Serious: Yes (Other)
  Sender: FDA-Public Use
  Company Number: US-EISAI MEDICAL RESEARCH-EC-2015-007391

PATIENT
  Sex: Male

DRUGS (6)
  1. FYCOMPA [Suspect]
     Active Substance: PERAMPANEL
     Indication: PARTIAL SEIZURES
     Route: 048
     Dates: start: 201501, end: 201502
  2. ZONEGRAN [Interacting]
     Active Substance: ZONISAMIDE
     Route: 048
     Dates: start: 201502, end: 2015
  3. FYCOMPA [Interacting]
     Active Substance: PERAMPANEL
     Route: 048
     Dates: start: 201502, end: 201502
  4. ZONEGRAN [Interacting]
     Active Substance: ZONISAMIDE
     Route: 048
     Dates: start: 2015
  5. OXTELLAR XR [Concomitant]
     Active Substance: OXCARBAZEPINE
     Indication: PARTIAL SEIZURES
     Route: 048
  6. ZONEGRAN [Interacting]
     Active Substance: ZONISAMIDE
     Indication: PARTIAL SEIZURES
     Route: 048
     Dates: start: 2006, end: 201502

REACTIONS (4)
  - Dizziness [Unknown]
  - Drug interaction [Unknown]
  - Homicidal ideation [Recovered/Resolved]
  - Abnormal behaviour [Unknown]

NARRATIVE: CASE EVENT DATE: 201502
